FAERS Safety Report 18536998 (Version 3)
Quarter: 2021Q1

REPORT INFORMATION
  Report Type: Spontaneous
  Country: GR (occurrence: GR)
  Receive Date: 20201124
  Receipt Date: 20210208
  Transmission Date: 20210419
  Serious: Yes (Other)
  Sender: FDA-Public Use
  Company Number: GR-AMGEN-GRCSP2020190631

PATIENT
  Age: 52 Year
  Sex: Female

DRUGS (1)
  1. ENBREL [Suspect]
     Active Substance: ETANERCEPT
     Indication: RHEUMATOID ARTHRITIS
     Dosage: 50 MILLIGRAM, QWK
     Route: 058
     Dates: start: 20200926

REACTIONS (5)
  - Rheumatoid arthritis [Recovered/Resolved]
  - Anxiety [Unknown]
  - Depressed mood [Unknown]
  - Emotional disorder [Unknown]
  - Stress [Unknown]

NARRATIVE: CASE EVENT DATE: 202011
